FAERS Safety Report 10041011 (Version 1)
Quarter: 2014Q1

REPORT INFORMATION
  Report Type: Spontaneous
  Country: US (occurrence: US)
  Receive Date: 20140327
  Receipt Date: 20140327
  Transmission Date: 20141002
  Serious: No
  Sender: FDA-Public Use
  Company Number: US-PFIZER INC-2014086319

PATIENT
  Sex: Male

DRUGS (1)
  1. VENLAFAXINE HCL [Suspect]
     Dosage: 225 MG, DAILY

REACTIONS (2)
  - Psychiatric symptom [Unknown]
  - Drug withdrawal syndrome [Not Recovered/Not Resolved]
